FAERS Safety Report 20857483 (Version 1)
Quarter: 2022Q2

REPORT INFORMATION
  Report Type: Spontaneous
  Country: US (occurrence: US)
  Receive Date: 20220520
  Receipt Date: 20220520
  Transmission Date: 20220721
  Serious: No
  Sender: FDA-Public Use
  Company Number: US-SANOFI-01104594

PATIENT
  Age: 59 Year
  Sex: Female

DRUGS (1)
  1. TOUJEO [Suspect]
     Active Substance: INSULIN GLARGINE
     Indication: Type 2 diabetes mellitus
     Dosage: UNK UNK, QD, DRUG STRUCTURE DOSAGE : 50 UNITS DRUG INTERVAL DOSAGE : ONCE A DAY DRUG TREATMENT DURAT

REACTIONS (5)
  - Amnesia [Unknown]
  - Hypoacusis [Unknown]
  - Cognitive disorder [Unknown]
  - Throat clearing [Unknown]
  - Pleural effusion [Unknown]
